FAERS Safety Report 13261043 (Version 1)
Quarter: 2017Q1

REPORT INFORMATION
  Report Type: Spontaneous
  Country: CH (occurrence: CH)
  Receive Date: 20170222
  Receipt Date: 20170222
  Transmission Date: 20170428
  Serious: Yes (Hospitalization)
  Sender: FDA-Public Use
  Company Number: CH-SA-2017SA026299

PATIENT
  Age: 52 Year
  Sex: Female
  Weight: 120 kg

DRUGS (13)
  1. FORXIGA [Suspect]
     Active Substance: DAPAGLIFLOZIN
     Route: 048
     Dates: end: 201612
  2. RISPERDAL [Concomitant]
     Active Substance: RISPERIDONE
     Route: 048
  3. FLEXPEN [Concomitant]
     Active Substance: UNSPECIFIED INGREDIENT
  4. NOVORAPID [Suspect]
     Active Substance: INSULIN ASPART
     Dosage: PRE FILLED SYRINGES, PENS
     Route: 058
  5. COVERSUM N [Concomitant]
     Active Substance: PERINDOPRIL
     Route: 048
  6. CADUET [Concomitant]
     Active Substance: AMLODIPINE BESYLATE\ATORVASTATIN CALCIUM
     Route: 048
  7. EFFEXOR XR [Concomitant]
     Active Substance: VENLAFAXINE HYDROCHLORIDE
     Route: 048
  8. ANXIOLIT [Concomitant]
     Active Substance: OXAZEPAM
  9. LANTUS SOLOSTAR [Suspect]
     Active Substance: INSULIN GLARGINE
     Dosage: PRE FILLED SYRINGES, PENS
     Route: 058
  10. GALVUMET [Concomitant]
     Active Substance: METFORMIN HYDROCHLORIDE\VILDAGLIPTIN
     Route: 048
  11. STILNOX [Concomitant]
     Active Substance: ZOLPIDEM TARTRATE
     Dosage: FILM-COATED DIVISIBLE TABLETS
     Route: 048
  12. PANTOZOL [Concomitant]
     Active Substance: PANTOPRAZOLE SODIUM
     Route: 048
  13. SOLOSTAR [Concomitant]
     Active Substance: DEVICE

REACTIONS (3)
  - Hypoglycaemia [Recovered/Resolved]
  - Liver function test abnormal [Recovered/Resolved]
  - Syncope [Recovered/Resolved]

NARRATIVE: CASE EVENT DATE: 20161210
